FAERS Safety Report 8249312-4 (Version None)
Quarter: 2012Q1

REPORT INFORMATION
  Report Type: 
  Country: None (occurrence: None)
  Receive Date: 20120327
  Receipt Date: 20120314
  Transmission Date: 20120608
  Serious: Yes (Death, Other)
  Sender: FDA-Public Use
  Company Number: 2009AL002025

PATIENT
  Age: 71 Year
  Sex: Male
  Weight: 61.2356 kg

DRUGS (21)
  1. DIGOXIN [Suspect]
     Indication: CARDIAC FAILURE CHRONIC
     Dosage: 0.25 MG
     Dates: start: 20050823, end: 20070203
  2. DIGOXIN [Suspect]
     Indication: CARDIAC DISORDER
     Dosage: 0.25 MG
     Dates: start: 20050823, end: 20070203
  3. MULTI-VITAMINS [Concomitant]
  4. ZAROXOLYN [Concomitant]
  5. GLUCOTROL [Concomitant]
  6. ATENOLOL [Concomitant]
  7. TOPROL-XL [Concomitant]
  8. ALLOPURINOL [Concomitant]
  9. COUMADIN [Concomitant]
  10. FISH OIL [Concomitant]
  11. GLIPIZIDE [Concomitant]
  12. BACITRACIN [Concomitant]
  13. DEPO-MEDROL [Concomitant]
  14. PROPDXYPHONE [Concomitant]
  15. SIMVASTATIN [Concomitant]
  16. PRANDIN [Concomitant]
  17. METOPROLOL TARTRATE [Concomitant]
  18. QUINAPRIL [Concomitant]
  19. LOPROX [Concomitant]
  20. KEFLEX [Concomitant]
  21. FUROSEMIDE [Concomitant]

REACTIONS (40)
  - ERYTHEMA [None]
  - SCLERODERMA [None]
  - TINEA PEDIS [None]
  - PERIPHERAL VASCULAR DISORDER [None]
  - WEIGHT DECREASED [None]
  - MUSCULOSKELETAL PAIN [None]
  - ROTATOR CUFF SYNDROME [None]
  - INSOMNIA [None]
  - OEDEMA PERIPHERAL [None]
  - OBESITY [None]
  - JOINT RANGE OF MOTION DECREASED [None]
  - PEAU D'ORANGE [None]
  - BLOOD PRESSURE DECREASED [None]
  - EJECTION FRACTION DECREASED [None]
  - MYOCARDIAL INFARCTION [None]
  - MULTIPLE INJURIES [None]
  - MENTAL DISORDER [None]
  - BLISTER [None]
  - PERIPHERAL COLDNESS [None]
  - NAIL HYPERTROPHY [None]
  - OSTEOARTHRITIS [None]
  - PLANTAR FASCIITIS [None]
  - BLOOD PRESSURE DIASTOLIC DECREASED [None]
  - SKIN HYPERPIGMENTATION [None]
  - TOXICITY TO VARIOUS AGENTS [None]
  - ANHEDONIA [None]
  - ARRHYTHMIA [None]
  - CELLULITIS [None]
  - SKIN ULCER [None]
  - MUSCLE STRAIN [None]
  - PULSE ABSENT [None]
  - SKIN EXFOLIATION [None]
  - HAIR GROWTH ABNORMAL [None]
  - PAIN [None]
  - LOCALISED OEDEMA [None]
  - EXOSTOSIS [None]
  - ARTHRITIS [None]
  - FOOT DEFORMITY [None]
  - JOINT CREPITATION [None]
  - VENOUS INSUFFICIENCY [None]
